FAERS Safety Report 8542948-2 (Version None)
Quarter: 2012Q3

REPORT INFORMATION
  Report Type: 
  Country: None (occurrence: None)
  Receive Date: 20120727
  Receipt Date: 20120723
  Transmission Date: 20120928
  Serious: No
  Sender: FDA-Public Use
  Company Number: US-PFIZER INC-2012162455

PATIENT
  Sex: Female
  Weight: 58.05 kg

DRUGS (10)
  1. DICLOFENAC [Concomitant]
  2. FENTANYL [Concomitant]
     Dosage: 25 UGM
     Route: 062
  3. IRON [Concomitant]
     Dosage: 3/XDAY
  4. INDERAL [Concomitant]
     Indication: MITRAL VALVE PROLAPSE
  5. HYDROCODONE [Concomitant]
     Dosage: 5/500 AS NEEDED
  6. FLEXERIL [Concomitant]
     Dosage: AS NEEDED
  7. DIOVAN [Concomitant]
     Indication: MITRAL VALVE PROLAPSE
  8. SUTENT [Suspect]
     Indication: METASTATIC RENAL CELL CARCINOMA
     Dosage: 50 MG DAILY, FIRST 42 DAY CYCLE
  9. ZOFRAN [Concomitant]
     Dosage: UNK
  10. COUMADIN [Concomitant]
     Indication: THROMBOSIS

REACTIONS (11)
  - CONTUSION [None]
  - NAUSEA [None]
  - ORAL PAIN [None]
  - ACTIVITIES OF DAILY LIVING IMPAIRED [None]
  - CONFUSIONAL STATE [None]
  - DECREASED APPETITE [None]
  - FATIGUE [None]
  - PRURITUS [None]
  - MALAISE [None]
  - DEHYDRATION [None]
  - HYPOKINESIA [None]
